FAERS Safety Report 8093377-X (Version None)
Quarter: 2012Q1

REPORT INFORMATION
  Report Type: 
  Country: None (occurrence: None)
  Receive Date: 20120131
  Receipt Date: 20120127
  Transmission Date: 20120608
  Serious: Yes (Other)
  Sender: FDA-Public Use
  Company Number: AU-PFIZER INC-2012022035

PATIENT
  Sex: Male

DRUGS (3)
  1. CELEBREX [Suspect]
     Dosage: TAKING FOR 2 YEARS
     Dates: start: 20100101
  2. ENDEP [Concomitant]
     Dosage: 25 MG, UNK
  3. ACETAMINOPHEN W/ CODEINE [Concomitant]

REACTIONS (1)
  - GASTROINTESTINAL SURGERY [None]
